FAERS Safety Report 10360181 (Version 3)
Quarter: 2014Q4

REPORT INFORMATION
  Report Type: Spontaneous
  Country: US (occurrence: US)
  Receive Date: 20140804
  Receipt Date: 20141007
  Transmission Date: 20150528
  Serious: No
  Sender: FDA-Public Use
  Company Number: US-BAXTER-2014BAX043172

PATIENT
  Age: 61 Year
  Sex: Male
  Weight: 102 kg

DRUGS (12)
  1. NEPHROCAPS [Concomitant]
     Active Substance: ASCORBIC ACID\BIOTIN\CYANOCOBALAMIN\FOLIC ACID\NIACIN\PANTOTHENIC ACID\PYRIDOXINE\RIBOFLAVIN\THIAMINE
     Indication: PRODUCT USED FOR UNKNOWN INDICATION
     Route: 048
     Dates: start: 20110920
  2. ZOLOFT [Concomitant]
     Active Substance: SERTRALINE HYDROCHLORIDE
     Indication: PRODUCT USED FOR UNKNOWN INDICATION
     Dosage: 1 TABLETS DAILY
     Route: 048
     Dates: start: 20140715
  3. RENVELA [Concomitant]
     Active Substance: SEVELAMER CARBONATE
     Indication: PRODUCT USED FOR UNKNOWN INDICATION
     Dosage: 4 WITY MEALS AND 3 WITH SNACKS
     Route: 048
     Dates: start: 20130215
  4. GABAPENTIN. [Concomitant]
     Active Substance: GABAPENTIN
     Indication: PRODUCT USED FOR UNKNOWN INDICATION
     Route: 048
     Dates: start: 20140805
  5. COUMADIN [Concomitant]
     Active Substance: WARFARIN SODIUM
     Dosage: TUESDAY TO SUNSAY
     Route: 048
     Dates: start: 20140715
  6. METOPROLOL [Concomitant]
     Active Substance: METOPROLOL
     Indication: PRODUCT USED FOR UNKNOWN INDICATION
     Route: 048
     Dates: start: 20110920
  7. DIANEAL LOW CALCIUM PERITONEAL DIALYSIS SOLUTION WITH DEXTROSE [Suspect]
     Active Substance: CALCIUM CHLORIDE\DEXTROSE\MAGNESIUM CHLORIDE\SODIUM CHLORIDE\SODIUM LACTATE
     Indication: PERITONEAL DIALYSIS
     Route: 033
     Dates: start: 20130810
  8. DIANEAL LOW CALCIUM PERITONEAL DIALYSIS SOLUTION WITH DEXTROSE [Suspect]
     Active Substance: CALCIUM CHLORIDE\DEXTROSE\MAGNESIUM CHLORIDE\SODIUM CHLORIDE\SODIUM LACTATE
     Indication: PERITONEAL DIALYSIS
     Route: 033
     Dates: start: 20130810
  9. FUROSEMIDE. [Concomitant]
     Active Substance: FUROSEMIDE
     Indication: PRODUCT USED FOR UNKNOWN INDICATION
     Route: 048
     Dates: start: 20131023
  10. SIMVASTATIN. [Concomitant]
     Active Substance: SIMVASTATIN
     Indication: PRODUCT USED FOR UNKNOWN INDICATION
     Route: 048
     Dates: start: 20110920
  11. CALCITRIOL. [Concomitant]
     Active Substance: CALCITRIOL
     Indication: PRODUCT USED FOR UNKNOWN INDICATION
     Route: 048
     Dates: start: 20140805
  12. COUMADIN [Concomitant]
     Active Substance: WARFARIN SODIUM
     Indication: PRODUCT USED FOR UNKNOWN INDICATION
     Dosage: MON TO WEDNESSDAY
     Route: 048
     Dates: start: 20140715

REACTIONS (1)
  - Fluid retention [Recovered/Resolved]

NARRATIVE: CASE EVENT DATE: 20140708
